FAERS Safety Report 9310890 (Version 1)
Quarter: 2013Q2

REPORT INFORMATION
  Report Type: Spontaneous
  Country: US (occurrence: None)
  Receive Date: 20130523
  Receipt Date: 20130523
  Transmission Date: 20140414
  Serious: Yes (Other)
  Sender: FDA-Public Use
  Company Number: None

PATIENT
  Age: 65 Year
  Sex: Male
  Weight: 87.7 kg

DRUGS (2)
  1. ZOLEDRONIC ACID [Suspect]
     Route: 042
     Dates: start: 20120928, end: 20130517
  2. PREDNISONE [Suspect]
     Indication: CELLULITIS
     Route: 048
     Dates: start: 20130428, end: 20130524

REACTIONS (1)
  - Osteonecrosis of jaw [None]
